FAERS Safety Report 4327584-6 (Version None)
Quarter: 2004Q1

REPORT INFORMATION
  Report Type: 
  Country: None (occurrence: None)
  Receive Date: 20040330
  Receipt Date: 20040330
  Transmission Date: 20041129
  Serious: Yes (Hospitalization)
  Sender: FDA-Public Use
  Company Number: None

PATIENT
  Age: 37 Year

DRUGS (1)
  1. ZOSYN [Suspect]
     Dosage: 3.375 GM Q 6 H       INTRAVENOUS
     Route: 042

REACTIONS (3)
  - NEUTROPENIA [None]
  - PYREXIA [None]
  - WHITE BLOOD CELL COUNT DECREASED [None]
